FAERS Safety Report 6483172-7 (Version None)
Quarter: 2009Q4

REPORT INFORMATION
  Report Type: 
  Country: None (occurrence: None)
  Receive Date: 20091209
  Receipt Date: 20091127
  Transmission Date: 20100525
  Serious: Yes (Hospitalization)
  Sender: FDA-Public Use
  Company Number: FR-AMGEN-US371156

PATIENT
  Sex: Female

DRUGS (4)
  1. ENBREL [Suspect]
     Indication: PSORIASIS
     Route: 058
     Dates: start: 20090818
  2. ENBREL [Suspect]
     Indication: PSORIATIC ARTHROPATHY
  3. ENBREL [Suspect]
     Indication: ANKYLOSING SPONDYLITIS
  4. NAXY [Suspect]
     Indication: LARYNGITIS
     Dosage: UNKNOWN
     Route: 048
     Dates: start: 20091001, end: 20091019

REACTIONS (13)
  - ABDOMINAL PAIN [None]
  - ABDOMINAL PAIN UPPER [None]
  - CONDITION AGGRAVATED [None]
  - DIARRHOEA [None]
  - DRY EYE [None]
  - FACE OEDEMA [None]
  - FIBROMYALGIA [None]
  - HOT FLUSH [None]
  - INJECTION SITE ERYTHEMA [None]
  - LARYNGITIS [None]
  - PSORIASIS [None]
  - PSORIATIC ARTHROPATHY [None]
  - VISION BLURRED [None]
